FAERS Safety Report 6466702-0 (Version None)
Quarter: 2009Q4

REPORT INFORMATION
  Report Type: 
  Country: None (occurrence: None)
  Receive Date: 20091202
  Receipt Date: 20091123
  Transmission Date: 20100525
  Serious: Yes (Hospitalization)
  Sender: FDA-Public Use
  Company Number: NL-BAXTER-2009BH018013

PATIENT
  Age: 72 Year
  Sex: Male

DRUGS (3)
  1. GAMMAGARD LIQUID [Suspect]
     Indication: DRUG USE FOR UNKNOWN INDICATION
     Route: 065
     Dates: start: 20091015, end: 20091015
  2. GAMMAGARD LIQUID [Suspect]
     Route: 065
     Dates: start: 20091029, end: 20091029
  3. SODIUM CHLORIDE 0.9% IN PLASTIC CONTAINER [Suspect]
     Indication: DRUG USE FOR UNKNOWN INDICATION
     Route: 065
     Dates: start: 20091029, end: 20091029

REACTIONS (1)
  - LUNG NEOPLASM MALIGNANT [None]
